FAERS Safety Report 6358913-X (Version None)
Quarter: 2009Q3

REPORT INFORMATION
  Report Type: 
  Country: None (occurrence: None)
  Receive Date: 20090916
  Receipt Date: 20090825
  Transmission Date: 20100115
  Serious: No
  Sender: FDA-Public Use
  Company Number: US-ABBOTT-09P-163-0594355-00

PATIENT
  Age: 67 Year
  Sex: Male
  Weight: 107.14 kg

DRUGS (2)
  1. TRILIPIX [Suspect]
     Indication: BLOOD TRIGLYCERIDES INCREASED
     Route: 048
  2. ZOCAR [Concomitant]
     Indication: BLOOD CHOLESTEROL INCREASED

REACTIONS (1)
  - BLOOD TRIGLYCERIDES INCREASED [None]
